FAERS Safety Report 9306709 (Version 4)
Quarter: 2014Q2

REPORT INFORMATION
  Report Type: Report from Study
  Country: US (occurrence: US)
  Receive Date: 20130523
  Receipt Date: 20140423
  Transmission Date: 20141212
  Serious: Yes (Hospitalization, Other)
  Sender: FDA-Public Use
  Company Number: US-ALEXION-A201300872

PATIENT
  Sex: Female

DRUGS (1)
  1. SOLIRIS [Suspect]
     Indication: PAROXYSMAL NOCTURNAL HAEMOGLOBINURIA
     Dosage: UNK
     Route: 042

REACTIONS (7)
  - Peripheral swelling [Unknown]
  - Vomiting [Unknown]
  - Pyrexia [Unknown]
  - Headache [Unknown]
  - Haemoglobin decreased [Unknown]
  - Weight decreased [Unknown]
  - Arthropod bite [Unknown]
